FAERS Safety Report 8382078-6 (Version None)
Quarter: 2012Q2

REPORT INFORMATION
  Report Type: 
  Country: None (occurrence: None)
  Receive Date: 20120524
  Receipt Date: 20120507
  Transmission Date: 20120825
  Serious: Yes (Hospitalization)
  Sender: FDA-Public Use
  Company Number: FR-JNJFOC-20120510077

PATIENT
  Sex: Female

DRUGS (7)
  1. RISPERDAL [Suspect]
     Indication: PRODUCT USED FOR UNKNOWN INDICATION
     Route: 048
     Dates: start: 20120303, end: 20120330
  2. TRIHEXYPHENIDYL HYDROCHLORIDE [Concomitant]
     Route: 048
  3. RISPERDAL CONSTA [Suspect]
     Indication: PRODUCT USED FOR UNKNOWN INDICATION
     Route: 030
     Dates: start: 20120330
  4. RISPERDAL [Suspect]
     Route: 048
     Dates: start: 20120330, end: 20120402
  5. LOXAPINE HCL [Suspect]
     Indication: PRODUCT USED FOR UNKNOWN INDICATION
     Route: 048
     Dates: start: 20120303, end: 20120330
  6. TRIHEXYPHENIDYL HYDROCHLORIDE [Concomitant]
     Indication: PRODUCT USED FOR UNKNOWN INDICATION
     Route: 048
     Dates: start: 20120402
  7. TRIHEXYPHENIDYL HYDROCHLORIDE [Concomitant]
     Route: 048
     Dates: start: 20120303, end: 20120402

REACTIONS (2)
  - WITHDRAWAL SYNDROME [None]
  - EXTRAPYRAMIDAL DISORDER [None]
